FAERS Safety Report 5501105-4 (Version None)
Quarter: 2007Q4

REPORT INFORMATION
  Report Type: 
  Country: None (occurrence: None)
  Receive Date: 20071029
  Receipt Date: 20071017
  Transmission Date: 20080405
  Serious: Yes (Other)
  Sender: FDA-Public Use
  Company Number: ES-PFIZER INC-2007077181

PATIENT
  Sex: Female
  Weight: 35 kg

DRUGS (2)
  1. GENOTROPIN [Suspect]
     Dosage: DAILY DOSE:1.2MG
     Route: 058
     Dates: start: 20031125, end: 20070911
  2. GENOTROPIN [Suspect]
     Dosage: DAILY DOSE:1.2MG
     Route: 058

REACTIONS (1)
  - SYNCOPE VASOVAGAL [None]
